FAERS Safety Report 6099930-7 (Version None)
Quarter: 2009Q1

REPORT INFORMATION
  Report Type: 
  Country: None (occurrence: None)
  Receive Date: 20090227
  Receipt Date: 20090227
  Transmission Date: 20090719
  Serious: Yes (Hospitalization, Other)
  Sender: FDA-Public Use
  Company Number: None

PATIENT
  Sex: Male
  Weight: 11.5 kg

DRUGS (1)
  1. BENZOCAINE 20% [Suspect]
     Indication: ORAL HERPES
     Dosage: 1 GM X1 OROPHARINGEAL
     Route: 049
     Dates: start: 20081206, end: 20081206

REACTIONS (7)
  - CYANOSIS [None]
  - INCORRECT DOSE ADMINISTERED [None]
  - IRRITABILITY [None]
  - LETHARGY [None]
  - MEDICATION ERROR [None]
  - METHAEMOGLOBINAEMIA [None]
  - OXYGEN SATURATION DECREASED [None]
